FAERS Safety Report 8953562 (Version 3)
Quarter: 2013Q1

REPORT INFORMATION
  Report Type: Spontaneous
  Country: US (occurrence: US)
  Receive Date: 20121206
  Receipt Date: 20130212
  Transmission Date: 20140127
  Serious: Yes (Hospitalization, Other)
  Sender: FDA-Public Use
  Company Number: US-PFIZER INC-2012304811

PATIENT
  Age: 81 Year
  Sex: Female

DRUGS (13)
  1. LYRICA [Suspect]
     Indication: NEURALGIA
     Dosage: 150 MG, 3X/DAY
     Route: 048
     Dates: start: 20110802
  2. LYRICA [Suspect]
     Dosage: 150 MG, 2X/DAY
  3. POTASSIUM [Concomitant]
     Dosage: 10 MEQ, 2X/DAY
  4. MAXIDEX [Concomitant]
     Dosage: 75 MG DAILY
  5. XANAX [Concomitant]
     Dosage: 0.25 MG, 3X/DAY
  6. SYNTHROID [Concomitant]
     Dosage: 100 MG DAILY
  7. NORCO [Concomitant]
     Dosage: HYDROCODONE BITARTRATE 10MG, PARACETAMOL 325MG, 1-2, 3X/DAY
  8. COREG [Concomitant]
     Dosage: 6.25 MG, 2X/DAY
  9. PLAVIX [Concomitant]
     Dosage: 75 MG DAILY
  10. ASPIRIN (E.C.) [Concomitant]
     Dosage: UNK
  11. ADVAIR [Concomitant]
     Dosage: FLUTICASONE PROPIONATE 500, SALMETEROL XINAFOATE 50
  12. ALBUTEROL [Concomitant]
     Dosage: UNK
     Route: 055
  13. ATROVENT [Concomitant]
     Dosage: UNK
     Route: 055

REACTIONS (7)
  - Respiratory failure [Unknown]
  - Chronic obstructive pulmonary disease [Unknown]
  - Bronchitis [Unknown]
  - Aortic stenosis [Unknown]
  - Chest discomfort [Unknown]
  - Incorrect dose administered [Unknown]
  - Hot flush [Recovered/Resolved]
